FAERS Safety Report 7269030-9 (Version None)
Quarter: 2011Q1

REPORT INFORMATION
  Report Type: 
  Country: None (occurrence: None)
  Receive Date: 20110202
  Receipt Date: 20110121
  Transmission Date: 20110831
  Serious: Yes (Hospitalization)
  Sender: FDA-Public Use
  Company Number: US-BIOGENIDEC-2011BI002858

PATIENT
  Sex: Male

DRUGS (1)
  1. TYSABRI [Suspect]
     Indication: MULTIPLE SCLEROSIS
     Route: 042
     Dates: start: 20090715

REACTIONS (7)
  - SLEEP DISORDER [None]
  - DEPRESSION [None]
  - DECREASED APPETITE [None]
  - CONFUSIONAL STATE [None]
  - HYPERSENSITIVITY [None]
  - ANXIETY [None]
  - ABDOMINAL PAIN UPPER [None]
